FAERS Safety Report 4544096-5 (Version None)
Quarter: 2005Q1

REPORT INFORMATION
  Report Type: 
  Country: None (occurrence: None)
  Receive Date: 20050104
  Receipt Date: 20041221
  Transmission Date: 20050727
  Serious: Yes (Death, Hospitalization)
  Sender: FDA-Public Use
  Company Number: JP-JNJFOC-20041205300

PATIENT
  Age: 88 Year
  Sex: Male

DRUGS (5)
  1. OFLOXACIN [Suspect]
     Indication: DRUG USE FOR UNKNOWN INDICATION
     Route: 049
  2. NEXIUM [Suspect]
     Indication: DRUG USE FOR UNKNOWN INDICATION
     Route: 049
  3. AUGMENTIN '200' [Suspect]
     Route: 042
  4. AUGMENTIN '200' [Suspect]
     Indication: DRUG USE FOR UNKNOWN INDICATION
     Route: 042
  5. PRIMPERAN TAB [Suspect]
     Indication: DRUG USE FOR UNKNOWN INDICATION
     Route: 065

REACTIONS (2)
  - ACUTE PULMONARY OEDEMA [None]
  - NEUTROPENIA [None]
